FAERS Safety Report 9461979 (Version 3)
Quarter: 2013Q4

REPORT INFORMATION
  Report Type: Spontaneous
  Country: AR (occurrence: AR)
  Receive Date: 20130816
  Receipt Date: 20131015
  Transmission Date: 20140711
  Serious: Yes (Other)
  Sender: FDA-Public Use
  Company Number: AR-PFIZER INC-2013234193

PATIENT
  Age: 72 Year
  Sex: Male

DRUGS (2)
  1. SUTENT [Suspect]
     Indication: METASTATIC RENAL CELL CARCINOMA
     Dosage: 50 MG, CYCLIC 4/2 SCHEME
     Route: 048
     Dates: start: 20120907, end: 201211
  2. SUTENT [Suspect]
     Dosage: UNK MG, CYCLIC
     Route: 048
     Dates: end: 201310

REACTIONS (11)
  - Aphagia [Recovered/Resolved]
  - Skin fissures [Recovered/Resolved]
  - Gastrointestinal disorder [Recovered/Resolved]
  - Anal fissure [Recovered/Resolved]
  - Weight decreased [Recovered/Resolved]
  - Ligament sprain [Not Recovered/Not Resolved]
  - Dry skin [Recovered/Resolved]
  - Tongue dry [Recovered/Resolved]
  - Weight decreased [Recovered/Resolved]
  - Disease progression [Recovered/Resolved]
  - Metastatic renal cell carcinoma [Recovered/Resolved]
